FAERS Safety Report 15041920 (Version 1)
Quarter: 2018Q2

REPORT INFORMATION
  Report Type: Spontaneous
  Country: GB (occurrence: GB)
  Receive Date: 20180621
  Receipt Date: 20180621
  Transmission Date: 20180711
  Serious: Yes (Death, Life-Threatening, Hospitalization, Other)
  Sender: FDA-Public Use
  Company Number: GB-TEVA-819374ACC

PATIENT
  Age: 87 Year
  Sex: Female
  Weight: 64.86 kg

DRUGS (4)
  1. WARFARIN SODIUM. [Suspect]
     Active Substance: WARFARIN SODIUM
     Indication: ATRIAL FIBRILLATION
     Dosage: 1 MG TABLETS, 3 MG TABLETS
     Dates: start: 20100420, end: 20171011
  2. BUMETANIDE. [Concomitant]
     Active Substance: BUMETANIDE
     Dosage: TAKE 1 TABLET ONE DAY AND A HALF A TABLET THE NEXT
     Dates: start: 20161108
  3. ZEROBASE [Concomitant]
     Dosage: AS DIRECTED
     Route: 065
     Dates: start: 20170606
  4. COLECALCIFEROL [Concomitant]
     Active Substance: CHOLECALCIFEROL
     Dosage: ALTERNATE WEEKS
     Dates: start: 20170605

REACTIONS (2)
  - Cerebral haemorrhage [Unknown]
  - Cerebral haemorrhage [Fatal]
